FAERS Safety Report 24461448 (Version 1)
Quarter: 2024Q4

REPORT INFORMATION
  Report Type: Spontaneous
  Country: US (occurrence: None)
  Receive Date: 20241018
  Receipt Date: 20241018
  Transmission Date: 20250115
  Serious: Yes (Other)
  Sender: Public
  Company Number: None

PATIENT
  Age: 62 Year
  Sex: Female
  Weight: 98.1 kg

DRUGS (1)
  1. JANUVIA [Suspect]
     Active Substance: SITAGLIPTIN PHOSPHATE
     Dosage: FREQUENCY : DAILY;?
     Route: 048

REACTIONS (2)
  - Benign neoplasm [None]
  - Therapy cessation [None]

NARRATIVE: CASE EVENT DATE: 20240202
